FAERS Safety Report 4384375-8 (Version None)
Quarter: 2004Q2

REPORT INFORMATION
  Report Type: 
  Country: None (occurrence: None)
  Receive Date: 20040624
  Receipt Date: 20040616
  Transmission Date: 20050107
  Serious: Yes (Hospitalization)
  Sender: FDA-Public Use
  Company Number: GB-BRISTOL-MYERS SQUIBB COMPANY-12620449

PATIENT
  Age: 65 Year
  Sex: Male

DRUGS (3)
  1. SINEMET [Suspect]
     Indication: PARKINSON'S DISEASE
     Route: 048
  2. COMTESS [Suspect]
     Indication: PARKINSON'S DISEASE
  3. STALEVO 100 [Suspect]
     Dates: start: 20040101, end: 20040224

REACTIONS (3)
  - ABDOMINAL PAIN [None]
  - GASTRITIS [None]
  - WEIGHT DECREASED [None]
